FAERS Safety Report 8176477-5 (Version None)
Quarter: 2012Q1

REPORT INFORMATION
  Report Type: 
  Country: None (occurrence: None)
  Receive Date: 20120301
  Receipt Date: 20120224
  Transmission Date: 20120608
  Serious: Yes (Other)
  Sender: FDA-Public Use
  Company Number: US-PFIZER INC-2012005766

PATIENT
  Sex: Female

DRUGS (15)
  1. CHONDROITIN/GLUCOSAMINE [Concomitant]
     Dosage: UNK
  2. FEMARA [Concomitant]
     Dosage: 2.5 MG, UNK
  3. GRAPE SEED [Concomitant]
     Dosage: UNK
  4. SIMVASTATIN [Concomitant]
     Dosage: 40 MG, UNK
  5. FISH OIL [Concomitant]
     Dosage: UNK
  6. EFFEXOR XR [Suspect]
     Dosage: 37.5 MG, 1X/DAY
  7. MELOXICAM [Concomitant]
     Dosage: 15 MG, UNK
  8. DILTIAZEM [Concomitant]
     Dosage: 120 MG, UNK
  9. CALCIUM WITH VITAMIN D [Concomitant]
     Dosage: UNK
  10. METFORMIN [Concomitant]
     Dosage: 1000 MG, UNK
  11. EFFEXOR [Suspect]
     Dosage: 37.5 MG, 1X/DAY
  12. ACETYLSALICYLIC ACID [Concomitant]
     Dosage: 81 MG, UNK
  13. GLIPIZIDE [Concomitant]
     Dosage: 5 MG, UNK
  14. RED YEAST RICE [Concomitant]
     Dosage: UNK
  15. GABAPENTIN [Concomitant]
     Dosage: 100 MG, UNK

REACTIONS (1)
  - BREAST CANCER FEMALE [None]
